FAERS Safety Report 21898717 (Version 1)
Quarter: 2023Q1

REPORT INFORMATION
  Report Type: Spontaneous
  Country: US (occurrence: None)
  Receive Date: 20230120
  Receipt Date: 20230120
  Transmission Date: 20230418
  Serious: No
  Sender: FDA-Public Use
  Company Number: None

PATIENT
  Sex: Male
  Weight: 71.67 kg

DRUGS (8)
  1. TEMOZOLOMIDE [Suspect]
     Active Substance: TEMOZOLOMIDE
     Indication: Brain neoplasm malignant
     Dosage: FREQUENCY : DAILY;?
     Route: 048
  2. LACTULOSE [Concomitant]
     Active Substance: LACTULOSE
  3. MIRALAX [Concomitant]
     Active Substance: POLYETHYLENE GLYCOL 3350
  4. OLANZAPINE [Concomitant]
     Active Substance: OLANZAPINE
  5. METOPROLOL [Concomitant]
     Active Substance: METOPROLOL
  6. LOSARTAN [Concomitant]
     Active Substance: LOSARTAN
  7. FAMOTIDINE [Concomitant]
     Active Substance: FAMOTIDINE
  8. DEXAMETHASONE [Concomitant]
     Active Substance: DEXAMETHASONE

REACTIONS (1)
  - Hospice care [None]
